FAERS Safety Report 9494073 (Version 1)
Quarter: 2013Q3

REPORT INFORMATION
  Report Type: Spontaneous
  Country: US (occurrence: None)
  Receive Date: 20130829
  Receipt Date: 20130829
  Transmission Date: 20140515
  Serious: Yes (Life-Threatening, Other)
  Sender: FDA-Public Use
  Company Number: None

PATIENT
  Age: 19 Year
  Sex: Female

DRUGS (2)
  1. PROSTIN [Suspect]
     Dates: start: 20130718, end: 20130718
  2. CERVIDIL [Suspect]

REACTIONS (3)
  - Foetal heart rate abnormal [None]
  - Caesarean section [None]
  - Exposure during pregnancy [None]
